FAERS Safety Report 6550227-8 (Version None)
Quarter: 2010Q1

REPORT INFORMATION
  Report Type: 
  Country: None (occurrence: None)
  Receive Date: 20100125
  Receipt Date: 20100114
  Transmission Date: 20100710
  Serious: Yes (Disabling)
  Sender: FDA-Public Use
  Company Number: US-ASTRAZENECA-2010SE01904

PATIENT
  Age: 72 Year
  Sex: Female

DRUGS (15)
  1. TOPROL-XL [Suspect]
     Route: 048
  2. IMDUR [Suspect]
     Route: 048
  3. CRESTOR [Suspect]
     Route: 048
  4. ASOCOL [Suspect]
  5. EFFIENT [Suspect]
  6. ASPIRIN [Suspect]
  7. NITROGLYCERIN [Suspect]
  8. AVAPRO [Suspect]
  9. LEVOTHYROXINE SODIUM [Suspect]
  10. NIASPAN [Suspect]
  11. ZOLOFT [Suspect]
  12. PREVACID [Suspect]
  13. FOLTX [Suspect]
  14. COLACE [Suspect]
  15. RESTORIL [Suspect]

REACTIONS (1)
  - MYOPATHY [None]
